FAERS Safety Report 9699900 (Version 10)
Quarter: 2014Q3

REPORT INFORMATION
  Report Type: Spontaneous
  Country: US (occurrence: US)
  Receive Date: 20131121
  Receipt Date: 20140805
  Transmission Date: 20150326
  Serious: Yes (Hospitalization, Other)
  Sender: FDA-Public Use
  Company Number: US-JNJFOC-20131109146

PATIENT
  Age: 29 Year
  Sex: Female
  Weight: 54.43 kg

DRUGS (9)
  1. TYLENOL EXTRA STRENGTH [Suspect]
     Active Substance: ACETAMINOPHEN
     Indication: BREAKTHROUGH PAIN
     Dosage: APPROXIMATELY 3-4 TABLETS EVERY 4-6 HOURS
     Route: 048
     Dates: start: 20111108, end: 20111114
  2. FENTANYL. [Concomitant]
     Active Substance: FENTANYL
     Indication: PAIN
     Route: 065
     Dates: start: 20120514
  3. FENTORA [Concomitant]
     Active Substance: FENTANYL CITRATE
     Indication: PAIN
     Route: 065
     Dates: start: 20120514
  4. VICODIN [Suspect]
     Active Substance: ACETAMINOPHEN\HYDROCODONE BITARTRATE
     Indication: PAIN
     Dosage: 7.5 AND 750, APPROXIMATELY EIGHT TABLETS.
     Route: 065
  5. TYLENOL EXTRA STRENGTH [Suspect]
     Active Substance: ACETAMINOPHEN
     Route: 048
  6. FENTANYL. [Concomitant]
     Active Substance: FENTANYL
     Indication: PAIN
     Route: 065
     Dates: start: 20120514
  7. OXYCONTIN [Concomitant]
     Active Substance: OXYCODONE HYDROCHLORIDE
     Indication: PAIN
     Route: 065
  8. XANAX [Concomitant]
     Active Substance: ALPRAZOLAM
     Indication: PAIN
     Route: 065
  9. NORCO [Suspect]
     Active Substance: ACETAMINOPHEN\HYDROCODONE BITARTRATE
     Indication: PAIN
     Dosage: DOSAGE: FOUR TABLETS OF 7.5/750 EVERY 4 HOURS
     Route: 065
     Dates: start: 20111108, end: 20111114

REACTIONS (6)
  - Hepatotoxicity [Unknown]
  - Hepatic encephalopathy [Unknown]
  - Drug dependence [Unknown]
  - Acute hepatic failure [Unknown]
  - Accidental overdose [Unknown]
  - Hepatic necrosis [Unknown]

NARRATIVE: CASE EVENT DATE: 20111115
